FAERS Safety Report 9028540 (Version 1)
Quarter: 2013Q1

REPORT INFORMATION
  Report Type: Report from Study
  Country: JP (occurrence: JP)
  Receive Date: 20130124
  Receipt Date: 20130124
  Transmission Date: 20140127
  Serious: Yes (Hospitalization)
  Sender: FDA-Public Use
  Company Number: JP-JNJFOC-20121008312

PATIENT
  Age: 76 Year
  Sex: Male
  Weight: 54 kg

DRUGS (11)
  1. REMINYL [Suspect]
     Indication: DEMENTIA ALZHEIMER^S TYPE
     Route: 048
     Dates: start: 20120326
  2. REMINYL [Suspect]
     Indication: DEMENTIA ALZHEIMER^S TYPE
     Route: 048
     Dates: start: 20120228, end: 20120325
  3. ALOSITOL [Concomitant]
     Indication: HYPERURICAEMIA
     Route: 048
  4. OLMETEC [Concomitant]
     Indication: HYPERTENSION
     Route: 048
  5. ADALAT CR [Concomitant]
     Indication: HYPERTENSION
     Route: 048
  6. PLAVIX [Concomitant]
     Indication: CEREBRAL ARTERY EMBOLISM
     Route: 048
  7. ARTIST [Concomitant]
     Indication: HYPERTENSION
     Route: 048
  8. MYOCOR [Concomitant]
     Indication: ANGINA PECTORIS
     Route: 060
  9. FRANDOL [Concomitant]
     Indication: ANGINA PECTORIS
     Route: 062
  10. BAYASPIRIN [Concomitant]
     Indication: ANGINA PECTORIS
     Route: 048
     Dates: end: 20120530
  11. SIGMART [Concomitant]
     Indication: ANGINA PECTORIS
     Route: 048
     Dates: end: 20120530

REACTIONS (1)
  - Angina pectoris [Recovered/Resolved]
